FAERS Safety Report 23771760 (Version 2)
Quarter: 2024Q2

REPORT INFORMATION
  Report Type: Other
  Country: CA (occurrence: CA)
  Receive Date: 20240423
  Receipt Date: 20240518
  Transmission Date: 20240716
  Serious: Yes (Death, Other)
  Sender: FDA-Public Use
  Company Number: CA-CELLTRION INC.-2024CA008940

PATIENT

DRUGS (10)
  1. BEVACIZUMAB [Suspect]
     Active Substance: BEVACIZUMAB
     Indication: Malignant glioma
     Dosage: 5.0 MILLIGRAM, 1 EVERY 2 WEEKS
     Route: 065
  2. BEVACIZUMAB [Suspect]
     Active Substance: BEVACIZUMAB
     Dosage: 5 MG/M2, 1 EVERY 2 WEEKS
     Route: 065
  3. DEXAMETHASONE [Concomitant]
     Active Substance: DEXAMETHASONE
     Indication: Vasogenic cerebral oedema
     Dosage: 8.0 MILLIGRAM, 1 EVERY 1 DAYS
     Route: 065
  4. DEXAMETHASONE [Concomitant]
     Active Substance: DEXAMETHASONE
     Indication: Malignant glioma
     Dosage: 2.0 MILLIGRAM, 1 EVERY 1 DAYS
  5. DEXAMETHASONE [Concomitant]
     Active Substance: DEXAMETHASONE
     Dosage: 8.0 MG/M2, 1 EVERY 1 DAYS
     Route: 065
  6. LOMUSTINE [Concomitant]
     Active Substance: LOMUSTINE
     Dosage: UNK
     Route: 065
  7. TEMOZOLOMIDE [Concomitant]
     Active Substance: TEMOZOLOMIDE
     Dosage: UNK
     Route: 065
  8. TRAMETINIB [Concomitant]
     Active Substance: TRAMETINIB
     Indication: Malignant glioma
     Dosage: UNK
     Route: 065
  9. DEXAMETHASONE [Concomitant]
     Active Substance: DEXAMETHASONE
     Indication: Malignant glioma
     Dosage: 2.0 MG/M2, 1 EVERY 1 DAYS
     Route: 065
  10. LOMUSTINE;TEMOZOLOMIDE [Concomitant]
     Indication: Malignant glioma
     Route: 065

REACTIONS (4)
  - Malignant glioma [Fatal]
  - Off label use [Fatal]
  - Product use issue [Fatal]
  - Intentional product use issue [Unknown]
